FAERS Safety Report 18351957 (Version 1)
Quarter: 2020Q4

REPORT INFORMATION
  Report Type: Spontaneous
  Country: US (occurrence: US)
  Receive Date: 20201007
  Receipt Date: 20201007
  Transmission Date: 20210114
  Serious: No
  Sender: FDA-Public Use
  Company Number: US-AMGEN-USASP2020159663

PATIENT
  Age: 10 Year
  Sex: Male

DRUGS (1)
  1. XGEVA [Suspect]
     Active Substance: DENOSUMAB
     Indication: GRANULOMA
     Dosage: 6 CYCLES OVER A 3 MONTH PERIOD.
     Route: 065

REACTIONS (1)
  - Off label use [Unknown]
